FAERS Safety Report 11792685 (Version 1)
Quarter: 2015Q4

REPORT INFORMATION
  Report Type: Spontaneous
  Country: US (occurrence: None)
  Receive Date: 20151130
  Receipt Date: 20151130
  Transmission Date: 20160305
  Serious: Yes (Death, Hospitalization)
  Sender: FDA-Public Use
  Company Number: 2015US-106749

PATIENT
  Age: 66 Year
  Sex: Female

DRUGS (1)
  1. NITROFURANTOIN (NITROFURANTOIN) UNKNOWN [Suspect]
     Active Substance: NITROFURANTOIN
     Indication: URINARY TRACT INFECTION

REACTIONS (1)
  - Idiopathic pulmonary fibrosis [None]
